FAERS Safety Report 7231034-X (Version None)
Quarter: 2011Q1

REPORT INFORMATION
  Report Type: 
  Country: None (occurrence: None)
  Receive Date: 20110118
  Receipt Date: 20110105
  Transmission Date: 20110831
  Serious: Yes (Other)
  Sender: FDA-Public Use
  Company Number: JP-ELI_LILLY_AND_COMPANY-JP201101001589

PATIENT
  Age: 78 Year
  Sex: Female

DRUGS (4)
  1. TRAZODONE HYDROCHLORIDE [Concomitant]
     Indication: DEPRESSION
     Dosage: 25 MG, DAILY (1/D)
  2. SULPIRIDE [Concomitant]
     Indication: DEPRESSION
     Dosage: 300 MG, DAILY (1/D)
  3. SERTRALINE HYDROCHLORIDE [Concomitant]
     Indication: DEPRESSION
     Dosage: 25 MG, DAILY (1/D)
  4. OLANZAPINE [Suspect]
     Indication: DEPRESSION
     Dosage: 2.5 MG, DAILY (1/D)
     Route: 048

REACTIONS (3)
  - PERSECUTORY DELUSION [None]
  - SUICIDE ATTEMPT [None]
  - PSYCHOMOTOR HYPERACTIVITY [None]
